FAERS Safety Report 10029674 (Version 1)
Quarter: 2014Q1

REPORT INFORMATION
  Report Type: Spontaneous
  Country: US (occurrence: None)
  Receive Date: 20140321
  Receipt Date: 20140321
  Transmission Date: 20141002
  Serious: Yes (Other)
  Sender: FDA-Public Use
  Company Number: None

PATIENT
  Age: 55 Year
  Sex: Female
  Weight: 61.24 kg

DRUGS (2)
  1. VALACYCLOVIR [Suspect]
     Indication: PROPHYLAXIS
     Dates: start: 20120901, end: 20121017
  2. VALACYCLOVIR [Suspect]
     Indication: HERPES VIRUS INFECTION
     Dates: start: 20120901, end: 20121017

REACTIONS (8)
  - Arthralgia [None]
  - Back pain [None]
  - Nausea [None]
  - Vomiting [None]
  - Constipation [None]
  - Contusion [None]
  - Fatigue [None]
  - Sciatica [None]
